FAERS Safety Report 24114270 (Version 2)
Quarter: 2024Q3

REPORT INFORMATION
  Report Type: Spontaneous
  Country: US (occurrence: US)
  Receive Date: 20240720
  Receipt Date: 20240806
  Transmission Date: 20241016
  Serious: No
  Sender: ABBVIE
  Company Number: US-ABBVIE-5845932

PATIENT
  Age: 43 Year
  Weight: 124 kg

DRUGS (1)
  1. DALVANCE [Suspect]
     Active Substance: DALBAVANCIN
     Indication: Skin infection
     Dosage: FORM STRENGTH: 500 MILLIGRAM?FREQUENCY TEXT: 2ND DOSE
     Route: 042
     Dates: start: 20240702, end: 20240709

REACTIONS (4)
  - Erythema [Recovered/Resolved]
  - Hot flush [Recovered/Resolved]
  - Throat irritation [Recovered/Resolved]
  - Tremor [Recovered/Resolved]

NARRATIVE: CASE EVENT DATE: 20240709
